FAERS Safety Report 7965907-7 (Version None)
Quarter: 2011Q4

REPORT INFORMATION
  Report Type: 
  Country: None (occurrence: None)
  Receive Date: 20111208
  Receipt Date: 20111130
  Transmission Date: 20120403
  Serious: Yes (Other)
  Sender: FDA-Public Use
  Company Number: JP-GLAXOSMITHKLINE-B0760031A

PATIENT
  Sex: Female

DRUGS (3)
  1. TYKERB [Suspect]
     Indication: BREAST CANCER
     Dosage: 1250MG PER DAY
     Route: 048
     Dates: start: 20100323
  2. FEMARA [Concomitant]
     Indication: BREAST CANCER
     Dosage: 2.5MG PER DAY
     Route: 048
     Dates: start: 20090401
  3. XELODA [Concomitant]
     Indication: BREAST CANCER
     Dosage: 1800MG PER DAY
     Route: 048
     Dates: start: 20100325

REACTIONS (4)
  - DECREASED APPETITE [None]
  - GASTRIC ULCER [None]
  - NAUSEA [None]
  - WEIGHT DECREASED [None]
